FAERS Safety Report 9720854 (Version 6)
Quarter: 2015Q4

REPORT INFORMATION
  Report Type: Report from Study
  Country: US (occurrence: US)
  Receive Date: 20131129
  Receipt Date: 20151029
  Transmission Date: 20160305
  Serious: Yes (Other)
  Sender: FDA-Public Use
  Company Number: US-ROCHE-1259317

PATIENT
  Age: 58 Year
  Sex: Male

DRUGS (2)
  1. LUCENTIS [Suspect]
     Active Substance: RANIBIZUMAB
     Indication: RETINAL VASCULAR OCCLUSION
     Dosage: GIVEN OD
     Route: 050
     Dates: start: 20130524, end: 20131105
  2. LUCENTIS [Suspect]
     Active Substance: RANIBIZUMAB
     Indication: RETINAL VEIN OCCLUSION
     Route: 050

REACTIONS (4)
  - Vision blurred [Recovered/Resolved]
  - Blindness transient [Recovered/Resolved]
  - Visual acuity tests abnormal [Recovered/Resolved]
  - Night blindness [Recovered/Resolved]

NARRATIVE: CASE EVENT DATE: 20131105
